FAERS Safety Report 25026279 (Version 1)
Quarter: 2025Q1

REPORT INFORMATION
  Report Type: Spontaneous
  Country: FR (occurrence: FR)
  Receive Date: 20250301
  Receipt Date: 20250301
  Transmission Date: 20250408
  Serious: Yes (Hospitalization, Other)
  Sender: AUROBINDO
  Company Number: FR-AFSSAPS-RE2025000159

PATIENT
  Age: 84 Year
  Sex: Female

DRUGS (2)
  1. CANDESARTAN [Suspect]
     Active Substance: CANDESARTAN
     Indication: Hypertension
     Dosage: 16 MILLIGRAM, ONCE A DAY
     Route: 048
     Dates: end: 20240507
  2. FUROSEMIDE [Suspect]
     Active Substance: FUROSEMIDE
     Indication: Cardiac failure
     Dosage: 60 MILLIGRAM, ONCE A DAY
     Route: 048
     Dates: start: 20240401, end: 20240507

REACTIONS (1)
  - Acute kidney injury [Recovered/Resolved]

NARRATIVE: CASE EVENT DATE: 20240507
